FAERS Safety Report 6144728-4 (Version None)
Quarter: 2009Q2

REPORT INFORMATION
  Report Type: 
  Country: None (occurrence: None)
  Receive Date: 20090401
  Receipt Date: 20090122
  Transmission Date: 20091009
  Serious: Yes (Other)
  Sender: FDA-Public Use
  Company Number: DSA_33424_2009

PATIENT
  Age: 90 Year
  Sex: Female

DRUGS (3)
  1. DILTIAZEM HCL [Suspect]
     Indication: ANGINA PECTORIS
     Dosage: (DF ORAL)
     Route: 048
     Dates: start: 19790101
  2. CARDIZEM [Suspect]
     Indication: ANGINA PECTORIS
     Dosage: (120 MG QD ORAL)
     Route: 048
     Dates: start: 19790101, end: 20090101
  3. AAS [Concomitant]

REACTIONS (3)
  - ANGINA PECTORIS [None]
  - OEDEMA PERIPHERAL [None]
  - PAIN IN EXTREMITY [None]
